FAERS Safety Report 14890083 (Version 1)
Quarter: 2018Q2

REPORT INFORMATION
  Report Type: Report from Study
  Country: AR (occurrence: AR)
  Receive Date: 20180514
  Receipt Date: 20180514
  Transmission Date: 20180711
  Serious: Yes (Other)
  Sender: FDA-Public Use
  Company Number: AR-ROCHE-2118005

PATIENT

DRUGS (3)
  1. SOFOSBUVIR [Suspect]
     Active Substance: SOFOSBUVIR
     Indication: CHRONIC HEPATITIS C
     Route: 065
  2. DACLATASVIR. [Suspect]
     Active Substance: DACLATASVIR
     Indication: CHRONIC HEPATITIS C
     Route: 065
  3. RIBAVIRIN. [Suspect]
     Active Substance: RIBAVIRIN
     Indication: CHRONIC HEPATITIS C
     Route: 065

REACTIONS (7)
  - Gastrointestinal haemorrhage [Unknown]
  - Anaemia [Unknown]
  - Hyperbilirubinaemia [Unknown]
  - Encephalopathy [Unknown]
  - Ascites [Unknown]
  - Hepatic encephalopathy [Unknown]
  - Bacterial infection [Unknown]
